FAERS Safety Report 13413707 (Version 1)
Quarter: 2017Q2

REPORT INFORMATION
  Report Type: Spontaneous
  Country: US (occurrence: US)
  Receive Date: 20170407
  Receipt Date: 20170407
  Transmission Date: 20170830
  Serious: No
  Sender: FDA-Public Use
  Company Number: None

PATIENT
  Age: 59 Year
  Sex: Male
  Weight: 132.3 kg

DRUGS (9)
  1. DACLATASVIR 60MG [Suspect]
     Active Substance: DACLATASVIR
     Indication: HEPATITIS C
     Route: 048
     Dates: start: 20160325, end: 20160617
  2. GABAPENTIN. [Concomitant]
     Active Substance: GABAPENTIN
  3. OMEPRAZOLE. [Concomitant]
     Active Substance: OMEPRAZOLE
  4. CARAFATE [Concomitant]
     Active Substance: SUCRALFATE
  5. VOLTAREN [Concomitant]
     Active Substance: DICLOFENAC SODIUM
  6. LASIX [Concomitant]
     Active Substance: FUROSEMIDE
  7. SOFOSBUVIR 400MG [Suspect]
     Active Substance: SOFOSBUVIR
     Indication: HEPATITIS C
     Route: 048
     Dates: start: 20160325, end: 20160617
  8. LACTULOSE. [Concomitant]
     Active Substance: LACTULOSE
  9. ADVIL [Concomitant]
     Active Substance: IBUPROFEN

REACTIONS (1)
  - Accidental overdose [None]

NARRATIVE: CASE EVENT DATE: 20160401
